FAERS Safety Report 6147689-7 (Version None)
Quarter: 2009Q2

REPORT INFORMATION
  Report Type: 
  Country: None (occurrence: None)
  Receive Date: 20090408
  Receipt Date: 20090331
  Transmission Date: 20091009
  Serious: Yes (Death, Hospitalization, Other)
  Sender: FDA-Public Use
  Company Number: PHHY2009AU12706

PATIENT
  Sex: Male

DRUGS (6)
  1. ZOLEDRONIC ACID [Suspect]
     Dosage: 4 MG
  2. PAMIDRONATE DISODIUM [Suspect]
     Dosage: 90 MG, QMO
  3. THALIDOMIDE [Suspect]
     Dosage: 100 MG
  4. PREDNISOLONE [Concomitant]
     Dosage: 25 MG DAILY
  5. PREDNISOLONE [Concomitant]
     Dosage: 25 MG ON ALTERNATE DAYS
  6. PREDNISOLONE [Concomitant]
     Dosage: 100 MG WEEKLY
     Route: 040

REACTIONS (21)
  - ANKLE FRACTURE [None]
  - BLOOD TESTOSTERONE DECREASED [None]
  - BONE MARROW FAILURE [None]
  - BONE METABOLISM DISORDER [None]
  - DEATH [None]
  - DEBRIDEMENT [None]
  - ESCHERICHIA INFECTION [None]
  - FEMUR FRACTURE [None]
  - FISTULA REPAIR [None]
  - HYPOAESTHESIA [None]
  - NECROSIS [None]
  - NEUROPATHY PERIPHERAL [None]
  - ORAL CAVITY FISTULA [None]
  - OSTEONECROSIS [None]
  - PAIN IN EXTREMITY [None]
  - RIB FRACTURE [None]
  - SEPSIS [None]
  - SEPTIC SHOCK [None]
  - TOOTH EXTRACTION [None]
  - TOOTHACHE [None]
  - WEIGHT BEARING DIFFICULTY [None]
